FAERS Safety Report 8930185 (Version 1)
Quarter: 2012Q4

REPORT INFORMATION
  Report Type: 
  Country: US (occurrence: US)
  Receive Date: 20121121
  Receipt Date: 20121121
  Transmission Date: 20130627
  Serious: Yes (Death)
  Sender: FDA-Public Use
  Company Number: US-ASTELLAS-1086915

PATIENT
  Sex: Male

DRUGS (1)
  1. TARCEVA [Suspect]
     Indication: UNEVALUABLE EVENT
     Route: 048
     Dates: start: 20110626, end: 20110929

REACTIONS (1)
  - Metastatic neoplasm [Fatal]
